FAERS Safety Report 17024024 (Version 1)
Quarter: 2019Q4

REPORT INFORMATION
  Report Type: Spontaneous
  Country: DE (occurrence: DE)
  Receive Date: 20191113
  Receipt Date: 20191113
  Transmission Date: 20200122
  Serious: Yes (Disabling)
  Sender: FDA-Public Use
  Company Number: DE-BIOGEN-2019BI00805460

PATIENT
  Age: 65 Year
  Sex: Female
  Weight: 44 kg

DRUGS (1)
  1. TECFIDERA [Suspect]
     Active Substance: DIMETHYL FUMARATE
     Indication: MULTIPLE SCLEROSIS
     Route: 048
     Dates: start: 20150407

REACTIONS (3)
  - Basal cell carcinoma [Recovered/Resolved with Sequelae]
  - Actinic keratosis [Recovered/Resolved with Sequelae]
  - Precancerous skin lesion [Recovered/Resolved with Sequelae]

NARRATIVE: CASE EVENT DATE: 201703
